FAERS Safety Report 4885923-1 (Version None)
Quarter: 2006Q1

REPORT INFORMATION
  Report Type: 
  Country: None (occurrence: None)
  Receive Date: 20060117
  Receipt Date: 20060104
  Transmission Date: 20060701
  Serious: Yes (Hospitalization)
  Sender: FDA-Public Use
  Company Number: GXKR2005FR02205

PATIENT
  Age: 73 Year
  Sex: Male

DRUGS (3)
  1. KETOPROFEN [Suspect]
     Indication: OSTEOARTHRITIS
     Dates: start: 20021129
  2. ROFECOXIB [Suspect]
     Indication: OSTEOARTHRITIS
     Dosage: 50 MG, QD, UNKNOWN
     Dates: start: 20030131, end: 20030101
  3. ACEBUTOLOL [Concomitant]

REACTIONS (2)
  - LEUKOCYTOCLASTIC VASCULITIS [None]
  - VASCULAR PURPURA [None]
